FAERS Safety Report 7523883-5 (Version None)
Quarter: 2011Q2

REPORT INFORMATION
  Report Type: 
  Country: None (occurrence: None)
  Receive Date: 20110603
  Receipt Date: 20110523
  Transmission Date: 20111010
  Serious: Yes (Hospitalization)
  Sender: FDA-Public Use
  Company Number: US-AMGEN-USASP2011026782

PATIENT
  Age: 29 Year
  Sex: Female

DRUGS (2)
  1. ENBREL [Suspect]
     Indication: PSORIATIC ARTHROPATHY
     Dosage: 50 MG, QWK
     Dates: start: 20080601, end: 20090501
  2. ENBREL [Suspect]
     Indication: PSORIASIS

REACTIONS (3)
  - PSORIASIS [None]
  - INJECTION SITE PAIN [None]
  - PANCREATOLITHIASIS [None]
